FAERS Safety Report 14165876 (Version 1)
Quarter: 2017Q4

REPORT INFORMATION
  Report Type: Report from Study
  Country: ES (occurrence: ES)
  Receive Date: 20171107
  Receipt Date: 20171107
  Transmission Date: 20180321
  Serious: Yes (Hospitalization, Other)
  Sender: FDA-Public Use
  Company Number: ES-JNJFOC-20171103832

PATIENT
  Age: 69 Year
  Sex: Male
  Weight: 81 kg

DRUGS (1)
  1. REMICADE [Suspect]
     Active Substance: INFLIXIMAB
     Indication: PSORIATIC ARTHROPATHY
     Dosage: STRENGTH=100 MG
     Route: 042
     Dates: start: 20020809

REACTIONS (2)
  - Pharyngeal oedema [Recovering/Resolving]
  - Squamous cell carcinoma of head and neck [Recovering/Resolving]

NARRATIVE: CASE EVENT DATE: 20171011
